FAERS Safety Report 16076727 (Version 1)
Quarter: 2019Q1

REPORT INFORMATION
  Report Type: Spontaneous
  Country: US (occurrence: US)
  Receive Date: 20190214
  Receipt Date: 20190214
  Transmission Date: 20190418
  Serious: Yes (Hospitalization)
  Sender: FDA-Public Use
  Company Number: None

PATIENT
  Sex: Male
  Weight: 53.4 kg

DRUGS (9)
  1. CYCLOPHOSPHAMIDE. [Suspect]
     Active Substance: CYCLOPHOSPHAMIDE
     Dates: end: 20170815
  2. CYTARABINE 60 MG [Suspect]
     Active Substance: CYTARABINE
     Dates: end: 20181120
  3. VINCRISTINE SULFATE 6MG [Suspect]
     Active Substance: VINCRISTINE SULFATE
     Dates: end: 20181218
  4. DEXAMETHASONE. [Suspect]
     Active Substance: DEXAMETHASONE
     Dates: end: 20180417
  5. DOXORUBICIN HYDROCHLORIDE. [Concomitant]
     Active Substance: DOXORUBICIN HYDROCHLORIDE
     Dates: end: 20171212
  6. MERCAPTOPURINE 6000 MG [Suspect]
     Active Substance: MERCAPTOPURINE
     Dates: end: 20190114
  7. ERWINIA ASPARAGINASE [Suspect]
     Active Substance: ASPARAGINASE ERWINIA CHRYSANTHEMI
     Dates: end: 20171228
  8. HYDROCORTISONE 30MG [Suspect]
     Active Substance: HYDROCORTISONE
     Dates: end: 20181120
  9. METHOTREXATE 225 MG [Suspect]
     Active Substance: METHOTREXATE
     Dates: end: 20190101

REACTIONS (1)
  - Osteonecrosis [None]

NARRATIVE: CASE EVENT DATE: 20181204
